FAERS Safety Report 21823725 (Version 1)
Quarter: 2023Q1

REPORT INFORMATION
  Report Type: Spontaneous
  Country: US (occurrence: US)
  Receive Date: 20230105
  Receipt Date: 20230105
  Transmission Date: 20230418
  Serious: No
  Sender: FDA-Public Use
  Company Number: US-PFIZER INC-202300003689

PATIENT
  Age: 33 Year
  Sex: Female
  Weight: 155.13 kg

DRUGS (1)
  1. PAXLOVID [Suspect]
     Active Substance: NIRMATRELVIR\RITONAVIR
     Indication: COVID-19 treatment
     Dosage: UNK
     Dates: start: 20221230, end: 20230101

REACTIONS (5)
  - Heart rate decreased [Unknown]
  - Feeling abnormal [Unknown]
  - Sluggishness [Unknown]
  - Lethargy [Unknown]
  - Stomatitis [Not Recovered/Not Resolved]
